FAERS Safety Report 21962421 (Version 2)
Quarter: 2023Q1

REPORT INFORMATION
  Report Type: Report from Study
  Country: US (occurrence: US)
  Receive Date: 20230207
  Receipt Date: 20230325
  Transmission Date: 20230417
  Serious: No
  Sender: FDA-Public Use
  Company Number: US-002147023-NVSC2023US020753

PATIENT
  Sex: Female

DRUGS (3)
  1. COSENTYX [Suspect]
     Active Substance: SECUKINUMAB
     Indication: Psoriasis
     Dosage: 150 MG, QMO
     Route: 030
     Dates: start: 20210610
  2. CLOBETASOL [Suspect]
     Active Substance: CLOBETASOL
     Indication: Psoriasis
     Dosage: 0.5 %, BID
     Route: 061
  3. ENBREL [Concomitant]
     Active Substance: ETANERCEPT
     Indication: Psoriasis
     Dosage: UNK
     Route: 065

REACTIONS (7)
  - Seborrhoeic keratosis [Unknown]
  - Arthralgia [Unknown]
  - Psoriasis [Unknown]
  - Incorrect route of product administration [Unknown]
  - Treatment failure [Unknown]
  - Pain [Unknown]
  - Injection site pain [Unknown]
